FAERS Safety Report 5124759-3 (Version None)
Quarter: 2006Q4

REPORT INFORMATION
  Report Type: 
  Country: None (occurrence: None)
  Receive Date: 20061006
  Receipt Date: 20061006
  Transmission Date: 20070319
  Serious: Yes (Hospitalization)
  Sender: FDA-Public Use
  Company Number: None

PATIENT
  Age: 75 Year
  Sex: Male
  Weight: 84.369 kg

DRUGS (27)
  1. TAXOTERE [Suspect]
     Indication: NON-SMALL CELL LUNG CANCER
     Dosage: 20 MG /M2 (40 MG TOTAL )WKLY X 7 IV
     Route: 042
     Dates: start: 20060321
  2. TAXOTERE [Suspect]
     Indication: NON-SMALL CELL LUNG CANCER
     Dosage: 20 MG /M2 (40 MG TOTAL )WKLY X 7 IV
     Route: 042
     Dates: start: 20060328
  3. TAXOTERE [Suspect]
     Indication: NON-SMALL CELL LUNG CANCER
     Dosage: 20 MG /M2 (40 MG TOTAL )WKLY X 7 IV
     Route: 042
     Dates: start: 20060404
  4. TAXOTERE [Suspect]
     Indication: NON-SMALL CELL LUNG CANCER
     Dosage: 20 MG /M2 (40 MG TOTAL )WKLY X 7 IV
     Route: 042
     Dates: start: 20060411
  5. TAXOTERE [Suspect]
     Indication: NON-SMALL CELL LUNG CANCER
     Dosage: 20 MG /M2 (40 MG TOTAL )WKLY X 7 IV
     Route: 042
     Dates: start: 20060418
  6. TAXOTERE [Suspect]
     Indication: NON-SMALL CELL LUNG CANCER
     Dosage: 20 MG /M2 (40 MG TOTAL )WKLY X 7 IV
     Route: 042
     Dates: start: 20060425
  7. CARBOPLATIN [Suspect]
     Indication: NON-SMALL CELL LUNG CANCER
     Dosage: AUC2 WKLY X 7 IV
     Route: 042
     Dates: start: 20040404
  8. CARBOPLATIN [Suspect]
     Indication: NON-SMALL CELL LUNG CANCER
     Dosage: AUC2 WKLY X 7 IV
     Route: 042
     Dates: start: 20060321
  9. CARBOPLATIN [Suspect]
     Indication: NON-SMALL CELL LUNG CANCER
     Dosage: AUC2 WKLY X 7 IV
     Route: 042
     Dates: start: 20060328
  10. CARBOPLATIN [Suspect]
     Indication: NON-SMALL CELL LUNG CANCER
     Dosage: AUC2 WKLY X 7 IV
     Route: 042
     Dates: start: 20060404
  11. CARBOPLATIN [Suspect]
     Indication: NON-SMALL CELL LUNG CANCER
     Dosage: AUC2 WKLY X 7 IV
     Route: 042
     Dates: start: 20060411
  12. CARBOPLATIN [Suspect]
     Indication: NON-SMALL CELL LUNG CANCER
     Dosage: AUC2 WKLY X 7 IV
     Route: 042
     Dates: start: 20060418
  13. CARBOPLATIN [Suspect]
     Indication: NON-SMALL CELL LUNG CANCER
     Dosage: AUC2 WKLY X 7 IV
     Route: 042
     Dates: start: 20060428
  14. NIACIN [Concomitant]
  15. ATENOLOL [Concomitant]
  16. ISOSORTBIDE DIPITRADE [Concomitant]
  17. LISINOPRIL [Concomitant]
  18. GLIPIZIDE [Concomitant]
  19. METFORMIN HCL [Concomitant]
  20. FINASTERIDE [Concomitant]
  21. TERAZOSIN HCL [Concomitant]
  22. GAVAPENTIN [Concomitant]
  23. . [Concomitant]
  24. . [Concomitant]
  25. . [Concomitant]
  26. . [Concomitant]
  27. . [Concomitant]

REACTIONS (2)
  - DIARRHOEA [None]
  - DYSPNOEA [None]
